FAERS Safety Report 18667761 (Version 2)
Quarter: 2020Q4

REPORT INFORMATION
  Report Type: Spontaneous
  Country: IT (occurrence: IT)
  Receive Date: 20201228
  Receipt Date: 20201231
  Transmission Date: 20210114
  Serious: Yes (Other)
  Sender: FDA-Public Use
  Company Number: IT-AMGEN-ITANI2020210103

PATIENT
  Age: 69 Year
  Sex: Male

DRUGS (1)
  1. MVASI [Suspect]
     Active Substance: BEVACIZUMAB-AWWB
     Indication: PRODUCT USED FOR UNKNOWN INDICATION
     Dosage: 0.5 MICROGRAM
     Route: 065
     Dates: start: 20200513

REACTIONS (3)
  - Drug ineffective [Unknown]
  - Macular oedema [Unknown]
  - Visual impairment [Unknown]

NARRATIVE: CASE EVENT DATE: 20201117
